FAERS Safety Report 20155941 (Version 1)
Quarter: 2021Q4

REPORT INFORMATION
  Report Type: Spontaneous
  Country: US (occurrence: US)
  Receive Date: 20211207
  Receipt Date: 20211207
  Transmission Date: 20220303
  Serious: No
  Sender: FDA-Public Use
  Company Number: US-VIVUS, Inc.-2021V1000043

PATIENT
  Sex: Male

DRUGS (19)
  1. PANCREAZE [Suspect]
     Active Substance: PANCRELIPASE AMYLASE\PANCRELIPASE LIPASE\PANCRELIPASE PROTEASE
     Indication: Product used for unknown indication
     Dosage: 10500 UNITS
     Route: 048
  2. AQUAPHOR [Concomitant]
     Active Substance: PETROLATUM
     Indication: Pruritus
     Route: 061
  3. Gold bond Anti Itch Lotion [Concomitant]
     Indication: Pruritus
     Route: 061
  4. CORTIZONE 10 [Concomitant]
     Active Substance: HYDROCORTISONE
     Indication: Pruritus
     Route: 061
  5. FINASTERIDE [Concomitant]
     Active Substance: FINASTERIDE
     Indication: Pruritus
     Route: 061
  6. MIDODRINE [Concomitant]
     Active Substance: MIDODRINE
     Indication: Cardiac disorder
     Route: 048
  7. FAMODIDINE [Concomitant]
     Indication: Gastrooesophageal reflux disease
     Route: 048
  8. VITAMINS [Concomitant]
     Active Substance: VITAMINS
     Indication: Supplementation therapy
     Route: 048
  9. PRAVASTATIN [Concomitant]
     Active Substance: PRAVASTATIN
     Indication: Blood cholesterol increased
     Route: 048
  10. TAMSULOSIN [Concomitant]
     Active Substance: TAMSULOSIN
     Indication: Prostate examination
     Route: 048
  11. DIETARY SUPPLEMENT\HERBALS\MILK THISTLE [Concomitant]
     Active Substance: DIETARY SUPPLEMENT\HERBALS\MILK THISTLE
     Indication: Renal impairment
     Route: 048
  12. VITAMIN B12 [Concomitant]
     Active Substance: CYANOCOBALAMIN
     Indication: Supplementation therapy
     Route: 048
  13. PROBIOTICS NOS [Concomitant]
     Active Substance: PROBIOTICS NOS
     Indication: Supplementation therapy
     Dosage: 80 BILLION CFU^S/PO
  14. PILOCLRPINE [Concomitant]
     Indication: Supplementation therapy
     Route: 048
  15. GABAPENTIN [Concomitant]
     Active Substance: GABAPENTIN
     Indication: Headache
     Route: 048
  16. GABAPENTIN [Concomitant]
     Active Substance: GABAPENTIN
     Indication: Pain
  17. CALCIUM\VITAMIN D [Concomitant]
     Active Substance: CALCIUM\VITAMIN D
     Indication: Supplementation therapy
     Route: 048
  18. ZINC [Concomitant]
     Active Substance: ZINC
     Indication: Supplementation therapy
     Route: 048
  19. VITAMIN C [Concomitant]
     Active Substance: ASCORBIC ACID
     Indication: Supplementation therapy
     Route: 048

REACTIONS (1)
  - Pruritus [Not Recovered/Not Resolved]
